FAERS Safety Report 21885574 (Version 4)
Quarter: 2023Q2

REPORT INFORMATION
  Report Type: Other
  Country: JP (occurrence: JP)
  Receive Date: 20230119
  Receipt Date: 20230420
  Transmission Date: 20230722
  Serious: Yes (Death, Hospitalization, Other)
  Sender: FDA-Public Use
  Company Number: JP-CHUGAI-2023001161AA

PATIENT
  Age: 83 Year
  Sex: Male
  Weight: 75.9 kg

DRUGS (16)
  1. ATEZOLIZUMAB [Suspect]
     Active Substance: ATEZOLIZUMAB
     Indication: Hepatocellular carcinoma
     Dosage: UNK
     Route: 041
     Dates: start: 20210929, end: 20210929
  2. BEVACIZUMAB [Suspect]
     Active Substance: BEVACIZUMAB
     Indication: Hepatocellular carcinoma
     Dosage: UNK
     Route: 041
     Dates: start: 20210929, end: 20210929
  3. HEPAACT [Concomitant]
     Dosage: 4.5 GRAM, TID
     Route: 048
  4. AMLODIPINE BESYLATE [Concomitant]
     Active Substance: AMLODIPINE BESYLATE
     Indication: Hypertension
     Dosage: 10 MILLIGRAM, QD
     Route: 048
  5. NEXIUM [Concomitant]
     Active Substance: ESOMEPRAZOLE MAGNESIUM
     Indication: Gastrooesophageal reflux disease
     Dosage: 20 MILLIGRAM, QD
     Route: 048
  6. AZILSARTAN KAMEDOXOMIL [Concomitant]
     Active Substance: AZILSARTAN KAMEDOXOMIL
     Indication: Hypertension
     Dosage: 40 MILLIGRAM, QD
     Route: 048
  7. EPALRESTAT [Concomitant]
     Active Substance: EPALRESTAT
     Indication: Diabetes mellitus
     Dosage: 50 MILLIGRAM, TID
     Route: 048
  8. BELSOMRA [Concomitant]
     Active Substance: SUVOREXANT
     Indication: Hypertension
     Dosage: 10 MILLIGRAM, QD
     Route: 048
     Dates: start: 20211108
  9. LOXOPROFEN SODIUM [Concomitant]
     Active Substance: LOXOPROFEN SODIUM
     Indication: Diabetes mellitus
     Dosage: 60 MILLIGRAM, QD
     Route: 048
     Dates: start: 20211104
  10. ACETAMINOPHEN\TRAMADOL HYDROCHLORIDE [Concomitant]
     Active Substance: ACETAMINOPHEN\TRAMADOL HYDROCHLORIDE
     Indication: Pain
     Dosage: UNK UNK, QID
     Route: 048
     Dates: start: 20211126
  11. PREGABALIN [Concomitant]
     Active Substance: PREGABALIN
     Indication: Pain
     Dosage: 25 MILLIGRAM, TID
     Route: 048
     Dates: start: 20211126
  12. URSODIOL [Concomitant]
     Active Substance: URSODIOL
     Dosage: 200 MILLIGRAM, TID
     Route: 048
     Dates: start: 20211126
  13. EPALRESTAT [Concomitant]
     Active Substance: EPALRESTAT
     Indication: Diabetes mellitus
     Dosage: 50 MILLIGRAM, TID
     Route: 048
     Dates: start: 20211104
  14. REBAMIPIDE [Concomitant]
     Active Substance: REBAMIPIDE
     Dosage: 100 MILLIGRAM, QD
     Route: 048
     Dates: start: 20211109
  15. SOLIQUA 100/33 [Concomitant]
     Active Substance: INSULIN GLARGINE\LIXISENATIDE
     Indication: Diabetes mellitus
     Dosage: UNK, QD
     Route: 065
  16. APIDRA [Concomitant]
     Active Substance: INSULIN GLULISINE
     Indication: Diabetes mellitus
     Dosage: UNK, TID
     Route: 048

REACTIONS (23)
  - Disease progression [Fatal]
  - Systemic inflammatory response syndrome [Not Recovered/Not Resolved]
  - Hepatorenal syndrome [Recovered/Resolved]
  - Tumour haemorrhage [Recovered/Resolved]
  - Tumour lysis syndrome [Unknown]
  - Subdural hygroma [Unknown]
  - Ascites [Recovered/Resolved]
  - Hyperkalaemia [Recovered/Resolved]
  - Renal impairment [Unknown]
  - Delirium [Unknown]
  - Hypertension [Not Recovered/Not Resolved]
  - Liver disorder [Unknown]
  - Inflammation [Unknown]
  - Nausea [Recovered/Resolved]
  - Decreased appetite [Unknown]
  - Oedema peripheral [Unknown]
  - C-reactive protein increased [Unknown]
  - Blood bilirubin increased [Unknown]
  - Anaemia [Unknown]
  - Pleural effusion [Unknown]
  - Restlessness [Unknown]
  - Somnolence [Unknown]
  - Urine output decreased [Unknown]

NARRATIVE: CASE EVENT DATE: 20211029
